FAERS Safety Report 4707629-1 (Version None)
Quarter: 2005Q3

REPORT INFORMATION
  Report Type: 
  Country: None (occurrence: None)
  Receive Date: 20050705
  Receipt Date: 20050615
  Transmission Date: 20060218
  Serious: Yes (Hospitalization)
  Sender: FDA-Public Use
  Company Number: 2005-BP-10446RO

PATIENT
  Age: 75 Year
  Sex: Female

DRUGS (3)
  1. DICLOFENAC (DICLOFENAC) [Suspect]
     Indication: CHOLELITHIASIS
     Dosage: 50 MG TID X 5 DAYS (SEE TEXT); ADDITIONAL UNSPECIFIED RECTAL DOSE 5D AFTER STARTING ORAL (NR) PR
     Route: 048
  2. DICLOFENAC (DICLOFENAC) [Suspect]
     Indication: PAIN
     Dosage: 50 MG TID X 5 DAYS (SEE TEXT); ADDITIONAL UNSPECIFIED RECTAL DOSE 5D AFTER STARTING ORAL (NR) PR
     Route: 048
  3. METFORMIN HCL [Suspect]
     Indication: DIABETES MELLITUS
     Dosage: 1 G TID (3 IN 1 D)

REACTIONS (28)
  - ABDOMINAL PAIN UPPER [None]
  - ABDOMINAL TENDERNESS [None]
  - ANION GAP INCREASED [None]
  - ANOREXIA [None]
  - ANURIA [None]
  - BACILLUS INFECTION [None]
  - BLOOD CHLORIDE DECREASED [None]
  - BLOOD GLUCOSE DECREASED [None]
  - BLOOD POTASSIUM INCREASED [None]
  - BLOOD PRESSURE DECREASED [None]
  - BLOOD SODIUM DECREASED [None]
  - C-REACTIVE PROTEIN INCREASED [None]
  - ELECTROCARDIOGRAM P WAVE ABNORMAL [None]
  - ELECTROCARDIOGRAM QRS COMPLEX PROLONGED [None]
  - ELECTROCARDIOGRAM T WAVE PEAKED [None]
  - GALLBLADDER PERFORATION [None]
  - GENERAL PHYSICAL HEALTH DETERIORATION [None]
  - HYPOTHERMIA [None]
  - LACTIC ACIDOSIS [None]
  - LOSS OF CONSCIOUSNESS [None]
  - METABOLIC ACIDOSIS [None]
  - NAUSEA [None]
  - PULSE ABSENT [None]
  - RENAL FAILURE ACUTE [None]
  - RESPIRATORY DISORDER [None]
  - RESPIRATORY RATE INCREASED [None]
  - SEPSIS [None]
  - VASOCONSTRICTION [None]
